FAERS Safety Report 9618799 (Version 1)
Quarter: 2013Q4

REPORT INFORMATION
  Report Type: Spontaneous
  Country: FR (occurrence: FR)
  Receive Date: 20131014
  Receipt Date: 20131014
  Transmission Date: 20140711
  Serious: Yes (Hospitalization)
  Sender: FDA-Public Use
  Company Number: PHHY2013FR114444

PATIENT
  Age: 30 Year
  Sex: Female

DRUGS (4)
  1. VOLTARENE LP [Suspect]
     Indication: RENAL COLIC
     Dosage: 75 MG, BID
     Route: 048
     Dates: start: 20130903, end: 20130904
  2. OGASTORO [Concomitant]
     Indication: RENAL COLIC
     Dosage: UNK UKN, UNK
     Dates: start: 20130903
  3. KLIPAL CODEINE [Concomitant]
     Indication: RENAL COLIC
     Dosage: 6 DF, QD
     Dates: start: 20130903
  4. ACUPAN [Concomitant]
     Indication: RENAL COLIC
     Dosage: 1 DF, UNK
     Dates: start: 20130903, end: 20130903

REACTIONS (2)
  - Pyelonephritis [Recovered/Resolved]
  - Condition aggravated [Recovered/Resolved]
